FAERS Safety Report 15664276 (Version 3)
Quarter: 2019Q1

REPORT INFORMATION
  Report Type: Report from Study
  Country: CN (occurrence: CN)
  Receive Date: 20181128
  Receipt Date: 20190321
  Transmission Date: 20190417
  Serious: Yes (Hospitalization)
  Sender: FDA-Public Use
  Company Number: CN-ROCHE-2219796

PATIENT
  Age: 58 Year
  Sex: Male
  Weight: 65 kg

DRUGS (12)
  1. NIFEDIPINE SR [Concomitant]
     Active Substance: NIFEDIPINE
     Route: 065
     Dates: start: 20181126
  2. ALBUMIN HUMAN [Concomitant]
     Active Substance: ALBUMIN HUMAN
     Indication: HYPOALBUMINAEMIA
     Route: 065
     Dates: start: 20181128, end: 20181202
  3. NIFEDIPINE SR [Concomitant]
     Active Substance: NIFEDIPINE
     Indication: HYPERTENSION
     Route: 065
     Dates: start: 20181112, end: 20181115
  4. DIAMMONIUM GLYCYRRHIZINATE [Concomitant]
     Active Substance: HERBALS\DIAMMONIUM GLYCYRRHIZINATE
     Route: 048
     Dates: start: 20181115
  5. URSODEOXYCHOLIC ACID [Concomitant]
     Active Substance: URSODIOL
     Route: 065
     Dates: start: 20181121
  6. ADEMETIONINE 1,4-BUTANEDISULFONATE [Concomitant]
     Route: 065
     Dates: start: 20181122, end: 20181122
  7. ATEZOLIZUMAB. [Suspect]
     Active Substance: ATEZOLIZUMAB
     Indication: HEPATOCELLULAR CARCINOMA
     Dosage: DATE OF MOST RECENT DOSE OF ATEZOLIZUMAB 1200 MG PRIOR TO SAE ONSET: 14/NOV/2018,
     Route: 042
     Dates: start: 20181114
  8. BEVACIZUMAB. [Suspect]
     Active Substance: BEVACIZUMAB
     Indication: HEPATOCELLULAR CARCINOMA
     Dosage: DATE OF MOST RECENT DOSE OF BEVACIZUMAB 975 MG  PRIOR TO SAE ONSET: 14/NOV/2018
     Route: 042
     Dates: start: 20181114
  9. ALBUMIN HUMAN [Concomitant]
     Active Substance: ALBUMIN HUMAN
     Route: 065
     Dates: start: 20181206, end: 20181207
  10. DYCLONINE HYDROCHLORIDE [Concomitant]
     Active Substance: DYCLONINE HYDROCHLORIDE
     Route: 065
     Dates: start: 20181108, end: 20181108
  11. ADEMETIONINE 1,4-BUTANEDISULFONATE [Concomitant]
     Route: 065
     Dates: start: 20181128, end: 20181207
  12. ENTECAVIR. [Concomitant]
     Active Substance: ENTECAVIR
     Route: 065
     Dates: start: 201804

REACTIONS (1)
  - Pyrexia [Recovered/Resolved]

NARRATIVE: CASE EVENT DATE: 20181116
